FAERS Safety Report 6712386-3 (Version None)
Quarter: 2010Q2

REPORT INFORMATION
  Report Type: 
  Country: None (occurrence: None)
  Receive Date: 20100505
  Receipt Date: 20100423
  Transmission Date: 20101027
  Serious: Yes (Hospitalization, Other)
  Sender: FDA-Public Use
  Company Number: US-ROCHE-692631

PATIENT
  Sex: Female

DRUGS (2)
  1. BEVACIZUMAB [Suspect]
     Dosage: PATIENT RECEIVED 3 DOSES OF BEVACIZUMAB.
     Route: 065
     Dates: start: 20090801, end: 20090901
  2. BEVACIZUMAB [Suspect]
     Dosage: 2ND DOSE ON 18 FEBRUARY 2010.
     Route: 065
     Dates: start: 20100211

REACTIONS (3)
  - EYE INFECTION [None]
  - PROTEIN TOTAL INCREASED [None]
  - RENAL FAILURE [None]
